FAERS Safety Report 16177565 (Version 1)
Quarter: 2019Q2

REPORT INFORMATION
  Report Type: Spontaneous
  Country: US (occurrence: US)
  Receive Date: 20190410
  Receipt Date: 20190410
  Transmission Date: 20190711
  Serious: No
  Sender: FDA-Public Use
  Company Number: US-AMGEN-USASP2019053921

PATIENT
  Age: 23 Year
  Sex: Female

DRUGS (3)
  1. IVABRADINE [Suspect]
     Active Substance: IVABRADINE
     Indication: SUPRAVENTRICULAR TACHYCARDIA
     Dosage: 2.5 MILLIGRAM
     Route: 048
  2. IVABRADINE [Suspect]
     Active Substance: IVABRADINE
     Dosage: 5 MILLIGRAM, BID
     Route: 048
  3. NADOLOL. [Concomitant]
     Active Substance: NADOLOL
     Indication: SUPRAVENTRICULAR TACHYCARDIA
     Dosage: 60-20 MILLIGRAM (20 MG BID)
     Route: 048

REACTIONS (1)
  - Off label use [Unknown]
